FAERS Safety Report 10741125 (Version 1)
Quarter: 2015Q1

REPORT INFORMATION
  Report Type: Spontaneous
  Country: US (occurrence: None)
  Receive Date: 20150123
  Receipt Date: 20150123
  Transmission Date: 20150721
  Serious: Yes (Death)
  Sender: FDA-Public Use
  Company Number: 2015COR00016

PATIENT
  Age: 47 Year
  Sex: Female

DRUGS (1)
  1. CARISOPRODOL (CARISOPRODOL) UNKNOWN [Suspect]
     Active Substance: CARISOPRODOL

REACTIONS (4)
  - Coma [None]
  - Depressed level of consciousness [None]
  - Hyperreflexia [None]
  - Tremor [None]
